FAERS Safety Report 20291204 (Version 1)
Quarter: 2022Q1

REPORT INFORMATION
  Report Type: Spontaneous
  Country: US (occurrence: None)
  Receive Date: 20220103
  Receipt Date: 20220103
  Transmission Date: 20220423
  Serious: Yes (Hospitalization)
  Sender: FDA-Public Use
  Company Number: None

PATIENT
  Age: 50 Year
  Sex: Female

DRUGS (13)
  1. CAPECITABINE [Suspect]
     Active Substance: CAPECITABINE
     Indication: Breast cancer female
     Dosage: FREQUENCY : TWICE A DAY?TAKE 4 TABLETS BY MOUTH TWICE DAILY FOR 14 DAYS, FOLLOWED BY 1 WEEK OFF, AND
     Route: 048
     Dates: start: 20211012
  2. AFINITOR [Concomitant]
     Active Substance: EVEROLIMUS
  3. BENZONATATE CAP [Concomitant]
  4. EXEMESTANE TAB [Concomitant]
  5. GLIPIZIDE ER [Concomitant]
     Active Substance: GLIPIZIDE
  6. GLIPIZIDE ER TAB [Concomitant]
  7. INSULIN LISP INJ [Concomitant]
  8. LIDO/PRILOCN CRE [Concomitant]
  9. MEMANTINE TAB HCL [Concomitant]
  10. METFORMIN TAB [Concomitant]
  11. ONDANSETRON TAB [Concomitant]
  12. POT CHLORIDE POW [Concomitant]
  13. PROCHLORPER TAB [Concomitant]

REACTIONS (4)
  - COVID-19 [None]
  - Pneumonia [None]
  - Therapy interrupted [None]
  - Tumour marker increased [None]

NARRATIVE: CASE EVENT DATE: 20210208
